FAERS Safety Report 11261759 (Version 2)
Quarter: 2015Q4

REPORT INFORMATION
  Report Type: Spontaneous
  Country: US (occurrence: US)
  Receive Date: 20150710
  Receipt Date: 20151105
  Transmission Date: 20160304
  Serious: Yes (Hospitalization, Other)
  Sender: FDA-Public Use
  Company Number: US-DSJP-DSU-2015-121205

PATIENT

DRUGS (6)
  1. BENICAR [Suspect]
     Active Substance: OLMESARTAN MEDOXOMIL
     Dosage: 10 MG, UNK
     Dates: start: 20090526, end: 20090728
  2. BENICAR HCT [Suspect]
     Active Substance: HYDROCHLOROTHIAZIDE\OLMESARTAN MEDOXOMIL
     Indication: HYPERTENSION
     Dosage: 20/12.5 MG, UNK
     Dates: start: 20040629, end: 20080401
  3. BENICAR [Suspect]
     Active Substance: OLMESARTAN MEDOXOMIL
     Indication: HYPERTENSION
     Dosage: UNK
     Dates: start: 200406
  4. BENICAR [Suspect]
     Active Substance: OLMESARTAN MEDOXOMIL
     Dosage: 20 MG, UNK
     Dates: start: 20071017, end: 20071019
  5. BENICAR [Suspect]
     Active Substance: OLMESARTAN MEDOXOMIL
     Dosage: 20 MG, UNK
     Dates: start: 20090505, end: 20090523
  6. BENICAR [Suspect]
     Active Substance: OLMESARTAN MEDOXOMIL
     Dosage: 20 MG, UNK
     Dates: start: 20080104, end: 20090409

REACTIONS (22)
  - Colitis [Unknown]
  - Incorrect dose administered [Unknown]
  - Metabolic acidosis [Unknown]
  - Chronic kidney disease [Unknown]
  - Oedema peripheral [Unknown]
  - Diverticulum intestinal [Unknown]
  - Hypotension [Recovered/Resolved]
  - Acute kidney injury [Recovered/Resolved]
  - Central venous catheterisation [Recovered/Resolved]
  - Hyperkalaemia [Unknown]
  - Haemorrhoids [Unknown]
  - Gastroduodenitis [Unknown]
  - Early satiety [Unknown]
  - Deep vein thrombosis [Unknown]
  - Malabsorption [Recovered/Resolved]
  - Dysgeusia [Unknown]
  - Hydronephrosis [Unknown]
  - Anaemia [Unknown]
  - Gastrooesophageal reflux disease [Unknown]
  - Hiatus hernia [Unknown]
  - Coeliac disease [Unknown]
  - Depression [Recovered/Resolved]

NARRATIVE: CASE EVENT DATE: 2008
